FAERS Safety Report 9240246 (Version 2)
Quarter: 2014Q1

REPORT INFORMATION
  Report Type: Spontaneous
  Country: US (occurrence: None)
  Receive Date: 20121109
  Receipt Date: 20131022
  Transmission Date: 20141002
  Serious: Yes (Other)
  Sender: FDA-Public Use
  Company Number: 1000036900

PATIENT
  Age: 60 Year
  Sex: Male
  Weight: 118 kg

DRUGS (4)
  1. DILTIAZEM [Suspect]
     Indication: SUPRAVENTRICULAR TACHYCARDIA
     Dosage: (120 MG, 1 IN 1 D)
     Route: 048
     Dates: start: 201206, end: 2012
  2. DILTIAZEM [Suspect]
     Indication: HYPERTENSION
     Dosage: (120 MG, 1 IN 1 D)
     Route: 048
     Dates: start: 201206, end: 2012
  3. ATACAND (CANDESARTAN CILEXETIL) [Concomitant]
  4. POTASSIUM [Concomitant]

REACTIONS (5)
  - Blood pressure increased [None]
  - Vision blurred [None]
  - Diplopia [None]
  - Headache [None]
  - Off label use [None]
